FAERS Safety Report 17064147 (Version 1)
Quarter: 2019Q4

REPORT INFORMATION
  Report Type: Spontaneous
  Country: US (occurrence: US)
  Receive Date: 20191122
  Receipt Date: 20191122
  Transmission Date: 20200122
  Serious: Yes (Other)
  Sender: FDA-Public Use
  Company Number: US-NOVOPROD-647128

PATIENT
  Age: 47 Year
  Sex: Male
  Weight: 184.61 kg

DRUGS (10)
  1. KORLYM [Suspect]
     Active Substance: MIFEPRISTONE
     Dosage: 600 MG, QD
     Route: 048
     Dates: start: 20180826
  2. LANTUS [Suspect]
     Active Substance: INSULIN GLARGINE
     Dosage: 65 IU, BID (WITH MEAL)
     Route: 058
  3. NOVOLOG [Suspect]
     Active Substance: INSULIN ASPART
     Indication: TYPE 2 DIABETES MELLITUS
     Dosage: 80 IU, TID (WITH EACH MEAL)
     Route: 058
  4. KORLYM [Suspect]
     Active Substance: MIFEPRISTONE
     Indication: CUSHING^S SYNDROME
     Dosage: 300 MG, QD
     Route: 048
     Dates: start: 20180811, end: 20180825
  5. TESTOSTERONE. [Concomitant]
     Active Substance: TESTOSTERONE
     Indication: TESTICULAR FAILURE
     Dosage: UNK
     Route: 065
  6. LANTUS [Suspect]
     Active Substance: INSULIN GLARGINE
     Indication: TYPE 2 DIABETES MELLITUS
     Dosage: 90 IU, BID (WITH MEAL)
     Route: 058
  7. VICTOZA [Concomitant]
     Active Substance: LIRAGLUTIDE
     Indication: TYPE 2 DIABETES MELLITUS
     Dosage: UNK
     Route: 058
  8. NOVOLOG [Suspect]
     Active Substance: INSULIN ASPART
     Dosage: 65 IU, TID (WITH EACH MEAL)
     Route: 058
  9. VITAMIN C [Suspect]
     Active Substance: ASCORBIC ACID
     Indication: MALAISE
     Dosage: CHEWABLE TABLETS A FEW TIMES A DAY
     Route: 048
     Dates: start: 201810
  10. ATORVASTATIN [Concomitant]
     Active Substance: ATORVASTATIN
     Indication: TYPE V HYPERLIPIDAEMIA
     Dosage: UNK
     Route: 048

REACTIONS (7)
  - Influenza like illness [Unknown]
  - Pain [Unknown]
  - Blood glucose decreased [Recovered/Resolved]
  - Bronchial disorder [Unknown]
  - Sinusitis [Unknown]
  - Hypoglycaemia [Recovered/Resolved]
  - Pollakiuria [Recovered/Resolved]

NARRATIVE: CASE EVENT DATE: 2018
